FAERS Safety Report 16978405 (Version 1)
Quarter: 2019Q4

REPORT INFORMATION
  Report Type: Report from Study
  Country: GB (occurrence: GB)
  Receive Date: 20191031
  Receipt Date: 20191031
  Transmission Date: 20200122
  Serious: Yes (Hospitalization, Other)
  Sender: FDA-Public Use
  Company Number: GB-GILEAD-2019-0435312

PATIENT
  Sex: Male

DRUGS (2)
  1. DOLOPHINE [Concomitant]
     Active Substance: METHADONE HYDROCHLORIDE
  2. SOFOSBUVIR W/VELPATASVIR [Suspect]
     Active Substance: SOFOSBUVIR\VELPATASVIR
     Indication: PRODUCT USED FOR UNKNOWN INDICATION
     Dosage: 1 DOSAGE FORM, QD
     Route: 048
     Dates: start: 2019

REACTIONS (3)
  - Endoscopy gastrointestinal [Unknown]
  - Anal haemorrhage [Unknown]
  - Product dose omission [Recovered/Resolved]
